FAERS Safety Report 9144698 (Version 1)
Quarter: 2013Q1

REPORT INFORMATION
  Report Type: Spontaneous
  Country: US (occurrence: US)
  Receive Date: 20130306
  Receipt Date: 20130306
  Transmission Date: 20140127
  Serious: Yes (Hospitalization, Other)
  Sender: FDA-Public Use
  Company Number: US-GILEAD-2013-0070429

PATIENT
  Sex: Female

DRUGS (1)
  1. LETAIRIS [Suspect]
     Indication: PULMONARY ARTERIAL HYPERTENSION
     Dates: start: 20120727

REACTIONS (6)
  - Renal failure acute [Unknown]
  - Cardiac failure congestive [Unknown]
  - Generalised oedema [Unknown]
  - Palpitations [Unknown]
  - Drug ineffective [Unknown]
  - Oedema peripheral [Unknown]
